FAERS Safety Report 5920979-6 (Version None)
Quarter: 2008Q4

REPORT INFORMATION
  Report Type: 
  Country: None (occurrence: None)
  Receive Date: 20081016
  Receipt Date: 20081014
  Transmission Date: 20090506
  Serious: Yes (Life-Threatening, Hospitalization)
  Sender: FDA-Public Use
  Company Number: DE-BRISTOL-MYERS SQUIBB COMPANY-14370852

PATIENT
  Age: 55 Year
  Sex: Female

DRUGS (3)
  1. COAPROVEL TABS 300MG/12.5MG [Suspect]
     Indication: HYPERTENSION
     Route: 048
     Dates: end: 20080707
  2. TREVILOR [Suspect]
     Indication: DEPRESSION
     Dosage: FORMULATION - TABLET.
     Route: 048
     Dates: start: 20080704, end: 20080707
  3. BISOPROLOL FUMARATE [Concomitant]
     Indication: HYPERTENSION
     Route: 048

REACTIONS (4)
  - ASTHENIA [None]
  - DIZZINESS [None]
  - HYPONATRAEMIA [None]
  - VOMITING [None]
